FAERS Safety Report 6894552-X (Version None)
Quarter: 2010Q3

REPORT INFORMATION
  Report Type: 
  Country: None (occurrence: None)
  Receive Date: 20100802
  Receipt Date: 20100720
  Transmission Date: 20110219
  Serious: Yes (Other)
  Sender: FDA-Public Use
  Company Number: PHHY2010US47399

PATIENT

DRUGS (1)
  1. EXFORGE [Suspect]
     Dosage: UNK
     Route: 048

REACTIONS (4)
  - ERYTHEMA [None]
  - RASH [None]
  - SKIN EXFOLIATION [None]
  - SWELLING FACE [None]
